FAERS Safety Report 24063959 (Version 3)
Quarter: 2025Q2

REPORT INFORMATION
  Report Type: Spontaneous
  Country: US (occurrence: US)
  Receive Date: 20240709
  Receipt Date: 20250603
  Transmission Date: 20250716
  Serious: Yes (Life-Threatening)
  Sender: ROCHE
  Company Number: US-ROCHE-10000019937

PATIENT
  Age: 49 Year
  Sex: Female

DRUGS (3)
  1. XOLAIR PFS [Suspect]
     Active Substance: OMALIZUMAB
     Indication: Multiple sclerosis
     Route: 058
     Dates: start: 202307
  2. XOLAIR PFS [Suspect]
     Active Substance: OMALIZUMAB
     Indication: Mast cell activation syndrome
  3. OCREVUS [Concomitant]
     Active Substance: OCRELIZUMAB

REACTIONS (2)
  - Anaphylactic reaction [Unknown]
  - Off label use [Unknown]

NARRATIVE: CASE EVENT DATE: 20230701
